FAERS Safety Report 9633481 (Version 1)
Quarter: 2013Q4

REPORT INFORMATION
  Report Type: Spontaneous
  Country: US (occurrence: US)
  Receive Date: 20131021
  Receipt Date: 20131021
  Transmission Date: 20140711
  Serious: No
  Sender: FDA-Public Use
  Company Number: US-BAUSCH-BL-2013-001115

PATIENT
  Age: 82 Year
  Sex: Male

DRUGS (2)
  1. BEPREVE (BEPOTASTINE BESILATE OPHTHALMIC SOLUTION 1.5%) [Suspect]
     Indication: EYE PRURITUS
     Dosage: 1 DROP IN EACH EYE, TWO TIMES PER DAY
     Route: 047
     Dates: start: 20130205
  2. TETRYZOLINE HYDROCHLORIDE [Concomitant]

REACTIONS (1)
  - Drug ineffective [Recovered/Resolved]
